FAERS Safety Report 9504420 (Version 2)
Quarter: 2013Q4

REPORT INFORMATION
  Report Type: Spontaneous
  Country: US (occurrence: US)
  Receive Date: 20130906
  Receipt Date: 20131029
  Transmission Date: 20140711
  Serious: Yes (Hospitalization, Other)
  Sender: FDA-Public Use
  Company Number: US-BRISTOL-MYERS SQUIBB COMPANY-19295724

PATIENT
  Age: 85 Year
  Sex: Female
  Weight: 86.17 kg

DRUGS (19)
  1. ORENCIA FOR INJ [Suspect]
     Indication: RHEUMATOID ARTHRITIS
     Route: 042
     Dates: start: 2012
  2. ASPIRIN [Concomitant]
  3. ASTELIN [Concomitant]
  4. ATENOLOL [Concomitant]
  5. CITRACAL + D [Concomitant]
  6. DIOVAN [Concomitant]
  7. FOLIC ACID [Concomitant]
  8. IBUPROFEN [Concomitant]
  9. IMDUR [Concomitant]
  10. LIPITOR [Concomitant]
  11. LYSINE [Concomitant]
  12. MAGNESIUM [Concomitant]
  13. MOMETASONE [Concomitant]
  14. MULTIVITAMIN [Concomitant]
  15. OMEGA-3 [Concomitant]
  16. PREDNISONE [Concomitant]
  17. VITAMIN B [Concomitant]
  18. VITAMIN C [Concomitant]
  19. VITAMIN D [Concomitant]

REACTIONS (4)
  - Cardiac disorder [Recovering/Resolving]
  - Squamous cell carcinoma [Not Recovered/Not Resolved]
  - Eye infection [Recovered/Resolved]
  - Cellulitis [Recovered/Resolved]
